FAERS Safety Report 17005135 (Version 1)
Quarter: 2019Q4

REPORT INFORMATION
  Report Type: Spontaneous
  Country: US (occurrence: US)
  Receive Date: 20190926
  Receipt Date: 20190926
  Transmission Date: 20200122
  Serious: Yes (Hospitalization)
  Sender: FDA-Public Use
  Company Number: None

PATIENT
  Age: 9 Month
  Sex: Male
  Weight: 9.04 kg

DRUGS (1)
  1. TPN [Suspect]
     Active Substance: AMINO ACIDS\DEXTROSE\ELECTROLYTES NOS\SOYBEAN OIL
     Indication: FEEDING DISORDER
     Dosage: TROPHAMINE 76GM DEXTROSE 14.25GM
     Route: 042
     Dates: start: 20190813, end: 20190905

REACTIONS (1)
  - Product preparation error [None]

NARRATIVE: CASE EVENT DATE: 20190813
